FAERS Safety Report 5333268-8 (Version None)
Quarter: 2007Q2

REPORT INFORMATION
  Report Type: 
  Country: None (occurrence: None)
  Receive Date: 20070524
  Receipt Date: 20070516
  Transmission Date: 20071010
  Serious: Yes (Hospitalization)
  Sender: FDA-Public Use
  Company Number: DE-ELI_LILLY_AND_COMPANY-DE200705005290

PATIENT
  Age: 59 Year
  Sex: Male

DRUGS (3)
  1. ALIMTA [Suspect]
     Indication: PLEURAL MESOTHELIOMA
     Dosage: 400 MG/M2, OTHER
     Route: 042
     Dates: start: 20060801
  2. ALIMTA [Suspect]
     Dosage: 300 MG/M2, OTHER
     Route: 042
  3. TAXOTERE [Concomitant]
     Dates: start: 20060801, end: 20061201

REACTIONS (1)
  - CONGESTIVE CARDIOMYOPATHY [None]
